FAERS Safety Report 4310137-3 (Version None)
Quarter: 2004Q1

REPORT INFORMATION
  Report Type: 
  Country: None (occurrence: None)
  Receive Date: 20040301
  Receipt Date: 20031125
  Transmission Date: 20041129
  Serious: No
  Sender: FDA-Public Use
  Company Number: WAES 0311USA02845

PATIENT
  Age: 57 Year
  Sex: Male
  Weight: 83.4619 kg

DRUGS (3)
  1. ZETIA [Suspect]
     Indication: HYPERLIPIDAEMIA
     Dosage: 10 MG/DAILY/PO
     Route: 048
     Dates: start: 20030519, end: 20030101
  2. ALTACE [Concomitant]
  3. ASPIRIN [Concomitant]

REACTIONS (3)
  - HALITOSIS [None]
  - MYALGIA [None]
  - PAIN [None]
